FAERS Safety Report 16059430 (Version 4)
Quarter: 2019Q3

REPORT INFORMATION
  Report Type: Report from Study
  Country: US (occurrence: US)
  Receive Date: 20190311
  Receipt Date: 20190826
  Transmission Date: 20191004
  Serious: Yes (Hospitalization)
  Sender: FDA-Public Use
  Company Number: US-ACTELION-A-NJ2019-187510

PATIENT
  Sex: Female
  Weight: 73.02 kg

DRUGS (4)
  1. ADCIRCA [Concomitant]
     Active Substance: TADALAFIL
  2. ADEMPAS [Concomitant]
     Active Substance: RIOCIGUAT
  3. VELETRI [Suspect]
     Active Substance: EPOPROSTENOL
     Indication: PULMONARY ARTERIAL HYPERTENSION
     Dosage: 35 NG/KG, PER MIN
     Route: 042
  4. VELETRI [Suspect]
     Active Substance: EPOPROSTENOL
     Dosage: 33 NG/KG, PER MIN
     Route: 042

REACTIONS (7)
  - Catheter site pruritus [Unknown]
  - Dyspnoea exertional [Recovering/Resolving]
  - Device alarm issue [Unknown]
  - Pain in jaw [Not Recovered/Not Resolved]
  - Kidney infection [Unknown]
  - Diarrhoea [Not Recovered/Not Resolved]
  - Hospitalisation [Unknown]
